FAERS Safety Report 8385829-X (Version None)
Quarter: 2012Q2

REPORT INFORMATION
  Report Type: 
  Country: None (occurrence: None)
  Receive Date: 20120525
  Receipt Date: 20120516
  Transmission Date: 20120825
  Serious: Yes (Death)
  Sender: FDA-Public Use
  Company Number: GB-JNJFOC-20120407056

PATIENT
  Age: 92 Year
  Sex: Male

DRUGS (6)
  1. HALOPERIDOL [Suspect]
     Indication: AGITATION
     Dosage: RECEIVED 1 DOSE
     Route: 030
     Dates: start: 20120330, end: 20120330
  2. SIMVASTATIN [Concomitant]
     Route: 065
  3. BISOPROLOL FUMARATE [Concomitant]
     Route: 065
  4. ASPIRIN [Concomitant]
     Route: 065
  5. DALTEPARIN SODIUM [Concomitant]
     Route: 065
  6. TRIMETHOPRIM [Concomitant]
     Route: 065

REACTIONS (3)
  - VENTRICULAR FIBRILLATION [None]
  - AGONAL RHYTHM [None]
  - CHEYNE-STOKES RESPIRATION [None]
